FAERS Safety Report 9399176 (Version 1)
Quarter: 2013Q3

REPORT INFORMATION
  Report Type: Report from Study
  Country: MX (occurrence: MX)
  Receive Date: 20130715
  Receipt Date: 20130715
  Transmission Date: 20140515
  Serious: Yes (Hospitalization, Other)
  Sender: FDA-Public Use
  Company Number: MX-BRISTOL-MYERS SQUIBB COMPANY-15668874

PATIENT
  Age: 59 Year
  Sex: Female

DRUGS (3)
  1. SAXAGLIPTIN [Suspect]
     Indication: TYPE 2 DIABETES MELLITUS
     Dosage: LAST DOSE ON 06FEB2013
     Dates: start: 20101015
  2. INSULIN NPH [Suspect]
     Indication: TYPE 2 DIABETES MELLITUS
     Dosage: DOSE: 50IU
  3. NITRATES [Concomitant]

REACTIONS (3)
  - Pyelonephritis [Recovered/Resolved]
  - Urinary tract infection [Recovered/Resolved]
  - Cervicitis [Recovered/Resolved]
